FAERS Safety Report 21342673 (Version 3)
Quarter: 2022Q3

REPORT INFORMATION
  Report Type: Spontaneous
  Country: US (occurrence: US)
  Receive Date: 20220916
  Receipt Date: 20220930
  Transmission Date: 20221026
  Serious: No
  Sender: FDA-Public Use
  Company Number: US-JNJFOC-20220912034

PATIENT

DRUGS (16)
  1. RISPERDAL CONSTA [Suspect]
     Active Substance: RISPERIDONE
     Indication: Product used for unknown indication
     Route: 065
  2. RISPERDAL CONSTA [Suspect]
     Active Substance: RISPERIDONE
  3. RISPERDAL CONSTA [Suspect]
     Active Substance: RISPERIDONE
  4. RISPERDAL CONSTA [Suspect]
     Active Substance: RISPERIDONE
  5. RISPERDAL CONSTA [Suspect]
     Active Substance: RISPERIDONE
  6. RISPERDAL CONSTA [Suspect]
     Active Substance: RISPERIDONE
  7. RISPERDAL CONSTA [Suspect]
     Active Substance: RISPERIDONE
  8. RISPERDAL CONSTA [Suspect]
     Active Substance: RISPERIDONE
  9. RISPERDAL CONSTA [Suspect]
     Active Substance: RISPERIDONE
     Indication: Product used for unknown indication
     Route: 030
  10. RISPERDAL CONSTA [Suspect]
     Active Substance: RISPERIDONE
  11. RISPERDAL CONSTA [Suspect]
     Active Substance: RISPERIDONE
  12. RISPERDAL CONSTA [Suspect]
     Active Substance: RISPERIDONE
  13. RISPERDAL CONSTA [Suspect]
     Active Substance: RISPERIDONE
  14. RISPERDAL CONSTA [Suspect]
     Active Substance: RISPERIDONE
  15. RISPERDAL CONSTA [Suspect]
     Active Substance: RISPERIDONE
  16. RISPERDAL CONSTA [Suspect]
     Active Substance: RISPERIDONE

REACTIONS (2)
  - Wrong technique in product usage process [Unknown]
  - Device occlusion [Unknown]
